FAERS Safety Report 4287291-5 (Version None)
Quarter: 2004Q1

REPORT INFORMATION
  Report Type: 
  Country: None (occurrence: None)
  Receive Date: 20040205
  Receipt Date: 20040121
  Transmission Date: 20041129
  Serious: Yes (Hospitalization)
  Sender: FDA-Public Use
  Company Number: USA030330400

PATIENT
  Age: 85 Year
  Sex: Female

DRUGS (6)
  1. FORTEO [Suspect]
     Indication: OSTEOPOROSIS
     Dosage: 20 UG/EVERY OTHER DAY
     Dates: start: 20030214
  2. DETROL LA (TOLTERODINE L-TARTRATE) [Concomitant]
  3. LOTREL [Concomitant]
  4. VITAMIN E [Concomitant]
  5. CALCIUM WITH VITAMIN D [Concomitant]
  6. ASPIRIN [Concomitant]

REACTIONS (8)
  - FALL [None]
  - INFLUENZA [None]
  - INJECTION SITE DISCOLOURATION [None]
  - INJECTION SITE HAEMORRHAGE [None]
  - PHARMACEUTICAL PRODUCT COMPLAINT [None]
  - PHARYNGOLARYNGEAL PAIN [None]
  - PNEUMONIA [None]
  - PRURITUS [None]
